FAERS Safety Report 9871593 (Version 3)
Quarter: 2014Q2

REPORT INFORMATION
  Report Type: Spontaneous
  Country: US (occurrence: US)
  Receive Date: 20140205
  Receipt Date: 20140527
  Transmission Date: 20141212
  Serious: Yes (Hospitalization)
  Sender: FDA-Public Use
  Company Number: US-UCBSA-111095

PATIENT
  Age: 58 Year
  Sex: Female

DRUGS (6)
  1. CIMZIA [Suspect]
     Indication: CROHN^S DISEASE
     Dates: start: 20110819, end: 201312
  2. PREDNISONE [Concomitant]
     Dates: start: 201312
  3. TRIAMTERENE -HCTZ [Concomitant]
     Indication: HYPERTENSION
     Dosage: 37.5/25 MG
  4. VITAMIN D [Concomitant]
     Dosage: DOSE: 2000 (UNITS UNSPECIFIED).
  5. MVI [Concomitant]
  6. BONIVA [Concomitant]
     Indication: OSTEOPOROSIS
     Dates: start: 2013

REACTIONS (1)
  - Lymph gland infection [Recovered/Resolved]
